FAERS Safety Report 9235936 (Version 1)
Quarter: 2013Q1

REPORT INFORMATION
  Report Type: Spontaneous
  Country: US (occurrence: None)
  Receive Date: 20121031
  Receipt Date: 20121031
  Transmission Date: 20140127
  Serious: Yes (Other)
  Sender: FDA-Public Use
  Company Number: PHEH2012US011767

PATIENT
  Age: 47 Year
  Sex: Female
  Weight: 70 kg

DRUGS (7)
  1. GILENYA [Suspect]
     Indication: MULTIPLE SCLEROSIS
     Route: 048
     Dates: start: 20120119, end: 201206
  2. TOVIAZ (FESOTERODINE FUMARATE) [Concomitant]
  3. CADUET (AMLODIPINE BESILATE, ATORVASTATIN CALCIUM) [Concomitant]
  4. PROVERA (MEDROXYPRGESTERONE ACETATE) [Concomitant]
  5. LAMASIL (TERBINAFINE) [Concomitant]
  6. PRISTIQ (DESVENLAFAXINE SUCICNATE) [Concomitant]
  7. PREVACID (LANSOPRAZOLE) [Concomitant]

REACTIONS (2)
  - Multiple sclerosis [None]
  - Metamorphopsia [None]
